FAERS Safety Report 5688325-3 (Version None)
Quarter: 2008Q1

REPORT INFORMATION
  Report Type: 
  Country: None (occurrence: None)
  Receive Date: 20080328
  Receipt Date: 20080328
  Transmission Date: 20080703
  Serious: No
  Sender: FDA-Public Use
  Company Number: None

PATIENT
  Age: 56 Year
  Sex: Male
  Weight: 86.1834 kg

DRUGS (1)
  1. AMBIEN [Suspect]
     Indication: INSOMNIA
     Dosage: 1 TABLET  1X AT NIGHT
     Dates: start: 20070815, end: 20080115

REACTIONS (3)
  - DEPRESSION [None]
  - FATIGUE [None]
  - SUICIDAL IDEATION [None]
